FAERS Safety Report 10496076 (Version 1)
Quarter: 2014Q4

REPORT INFORMATION
  Report Type: Spontaneous
  Country: PT (occurrence: PT)
  Receive Date: 20141003
  Receipt Date: 20141003
  Transmission Date: 20150528
  Serious: Yes (Other)
  Sender: FDA-Public Use
  Company Number: PT-JNJFOC-20140925426

PATIENT
  Sex: Female

DRUGS (4)
  1. QUETIAPINE [Concomitant]
     Active Substance: QUETIAPINE
     Route: 065
  2. VENLAFAXINE [Concomitant]
     Active Substance: VENLAFAXINE HYDROCHLORIDE
     Route: 065
  3. EBASTINE [Concomitant]
     Active Substance: EBASTINE
     Route: 065
  4. SIMPONI [Suspect]
     Active Substance: GOLIMUMAB
     Indication: PSORIATIC ARTHROPATHY
     Route: 058

REACTIONS (3)
  - Exposure during pregnancy [Unknown]
  - Rash [Recovering/Resolving]
  - Dermatitis exfoliative [Recovering/Resolving]
